FAERS Safety Report 11755167 (Version 2)
Quarter: 2015Q4

REPORT INFORMATION
  Report Type: Report from Study
  Country: US (occurrence: US)
  Receive Date: 20151119
  Receipt Date: 20151223
  Transmission Date: 20160304
  Serious: Yes (Death)
  Sender: FDA-Public Use
  Company Number: US-EXELIXIS-CABO-14004385

PATIENT
  Age: 43 Year
  Sex: Female

DRUGS (4)
  1. NEXAVAR [Concomitant]
     Active Substance: SORAFENIB
  2. COMETRIQ [Suspect]
     Active Substance: CABOZANTINIB S-MALATE
     Dosage: 140 MG, QD
     Route: 048
     Dates: start: 20141215, end: 201509
  3. COMETRIQ [Suspect]
     Active Substance: CABOZANTINIB S-MALATE
     Dosage: 120 MG, QD
     Route: 048
     Dates: start: 20140918
  4. COMETRIQ [Suspect]
     Active Substance: CABOZANTINIB S-MALATE
     Indication: THYROID CANCER
     Dosage: 140 MG, QD
     Route: 048
     Dates: start: 20140602, end: 20140629

REACTIONS (9)
  - Diarrhoea [Not Recovered/Not Resolved]
  - Hypertension [Unknown]
  - Rash [Unknown]
  - Haematochezia [Unknown]
  - Haemoptysis [Unknown]
  - Skin haemorrhage [Unknown]
  - Fatigue [Unknown]
  - Skin fissures [Unknown]
  - Malignant neoplasm progression [Fatal]

NARRATIVE: CASE EVENT DATE: 2014
